FAERS Safety Report 9580297 (Version 3)
Quarter: 2013Q4

REPORT INFORMATION
  Report Type: Spontaneous
  Country: JP (occurrence: JP)
  Receive Date: 20131002
  Receipt Date: 20131114
  Transmission Date: 20140711
  Serious: Yes (Other)
  Sender: FDA-Public Use
  Company Number: JP-PFIZER INC-2013259613

PATIENT
  Age: 37 Year
  Sex: Female
  Weight: 70.8 kg

DRUGS (10)
  1. LIPITOR [Suspect]
     Indication: HYPERCHOLESTEROLAEMIA
     Dosage: 10 MG, 1X/DAY
     Route: 048
     Dates: start: 20130106, end: 20130226
  2. LIPITOR [Suspect]
     Dosage: 10 MG, 1X/DAY
     Route: 048
     Dates: start: 20130403, end: 2013
  3. LIPITOR [Suspect]
     Dosage: 10 MG, 1X/DAY
     Route: 048
     Dates: start: 2013, end: 2013
  4. CRAVIT [Concomitant]
     Indication: ENTEROCOLITIS
     Dosage: 500 MG, DAILY
     Dates: start: 20130116, end: 20130120
  5. LAC B [Concomitant]
     Indication: ENTEROCOLITIS
     Dosage: 3 G, DAILY
     Dates: start: 20130116, end: 20130120
  6. TANNALBIN [Concomitant]
     Indication: ENTEROCOLITIS
     Dosage: 1 G, DAILY
     Dates: start: 20130116, end: 20130120
  7. LOPEMIN [Concomitant]
     Indication: ENTEROCOLITIS
     Dosage: 2 MG, DAILY
     Dates: start: 20130116, end: 20130120
  8. HISPORAN [Concomitant]
     Indication: ECZEMA
     Dosage: 6 MG, DAILY
     Dates: start: 20130129, end: 20130211
  9. ALESION [Concomitant]
     Indication: ECZEMA
     Dosage: 20 MG, DAILY
     Dates: start: 20130129, end: 20130211
  10. ATARAX-P [Concomitant]
     Indication: ECZEMA
     Dosage: UNK
     Dates: start: 20130430, end: 20130502

REACTIONS (4)
  - Enterocolitis [Recovered/Resolved]
  - Hypertension [Unknown]
  - Menstruation irregular [Recovered/Resolved]
  - Eczema [Unknown]
